FAERS Safety Report 6576464-4 (Version None)
Quarter: 2010Q1

REPORT INFORMATION
  Report Type: 
  Country: None (occurrence: None)
  Receive Date: 20100210
  Receipt Date: 20091123
  Transmission Date: 20100710
  Serious: No
  Sender: FDA-Public Use
  Company Number: A0808876A

PATIENT
  Age: 74 Year
  Sex: Female

DRUGS (7)
  1. ALTABAX [Suspect]
     Dosage: 1APP TWICE PER DAY
     Route: 061
     Dates: start: 20090923, end: 20091010
  2. ANTIBIOTIC [Concomitant]
  3. LEVOXYL [Concomitant]
  4. ALLEGRA [Concomitant]
  5. MIACALCIN [Concomitant]
  6. TUMS [Concomitant]
  7. PERCOCET [Concomitant]

REACTIONS (1)
  - APPLICATION SITE PAIN [None]
